FAERS Safety Report 12870329 (Version 2)
Quarter: 2017Q1

REPORT INFORMATION
  Report Type: Spontaneous
  Country: US (occurrence: US)
  Receive Date: 20161020
  Receipt Date: 20170124
  Transmission Date: 20170428
  Serious: No
  Sender: FDA-Public Use
  Company Number: US-AMGEN-USASL2016127117

PATIENT
  Age: 53 Year
  Sex: Male

DRUGS (1)
  1. REPATHA [Suspect]
     Active Substance: EVOLOCUMAB
     Indication: TYPE IIA HYPERLIPIDAEMIA
     Dosage: 140 MG,(EVERY OTHER WEEK) UNK
     Route: 058
     Dates: start: 20160909

REACTIONS (3)
  - Oropharyngeal pain [Unknown]
  - Secretion discharge [Unknown]
  - Cough [Unknown]
